FAERS Safety Report 9614430 (Version 1)
Quarter: 2013Q4

REPORT INFORMATION
  Report Type: Spontaneous
  Country: US (occurrence: US)
  Receive Date: 20131011
  Receipt Date: 20131011
  Transmission Date: 20140711
  Serious: Yes (Hospitalization)
  Sender: FDA-Public Use
  Company Number: US-SA-2013SA098610

PATIENT
  Age: 4 Year
  Sex: Female

DRUGS (1)
  1. LANTUS [Suspect]
     Route: 051

REACTIONS (3)
  - Adverse event [Recovered/Resolved]
  - Hypoglycaemia [Recovered/Resolved]
  - Drug administration error [Unknown]
